FAERS Safety Report 5887187-9 (Version None)
Quarter: 2008Q3

REPORT INFORMATION
  Report Type: 
  Country: None (occurrence: None)
  Receive Date: 20080917
  Receipt Date: 20080911
  Transmission Date: 20090109
  Serious: Yes (Other)
  Sender: FDA-Public Use
  Company Number: JP-PFIZER INC-2008076861

PATIENT
  Age: 74 Year
  Sex: Male

DRUGS (2)
  1. CARDENALIN [Suspect]
     Route: 048
  2. ALL OTHER THERAPEUTIC PRODUCTS [Concomitant]

REACTIONS (1)
  - INTERSTITIAL LUNG DISEASE [None]
